FAERS Safety Report 4681629-2 (Version None)
Quarter: 2005Q2

REPORT INFORMATION
  Report Type: 
  Country: None (occurrence: None)
  Receive Date: 20050602
  Receipt Date: 20050513
  Transmission Date: 20051028
  Serious: No
  Sender: FDA-Public Use
  Company Number: CAR_0020_2005

PATIENT
  Age: 43 Year
  Sex: Male

DRUGS (4)
  1. FLUOXETINE [Suspect]
     Indication: MAJOR DEPRESSION
     Dosage: 20 MG QDAY
  2. FLUOXETINE [Suspect]
     Indication: PSYCHOTIC DISORDER
     Dosage: 20 MG QDAY
  3. ARIPIPRAZOLE [Suspect]
     Indication: MAJOR DEPRESSION
     Dosage: 30 MG QDAY
  4. ARIPIPRAZOLE [Suspect]
     Indication: PSYCHOTIC DISORDER
     Dosage: 30 MG QDAY

REACTIONS (12)
  - AKATHISIA [None]
  - ALANINE AMINOTRANSFERASE INCREASED [None]
  - DEPRESSION [None]
  - MASKED FACIES [None]
  - MUSCULOSKELETAL STIFFNESS [None]
  - NEUROLEPTIC MALIGNANT SYNDROME [None]
  - PSYCHOMOTOR RETARDATION [None]
  - PSYCHOTIC DISORDER [None]
  - RESTLESSNESS [None]
  - SALIVARY HYPERSECRETION [None]
  - TACHYCARDIA [None]
  - TREMOR [None]
